FAERS Safety Report 5191701-9 (Version None)
Quarter: 2006Q4

REPORT INFORMATION
  Report Type: 
  Country: None (occurrence: None)
  Receive Date: 20061226
  Receipt Date: 20061016
  Transmission Date: 20070319
  Serious: Yes (Hospitalization)
  Sender: FDA-Public Use
  Company Number: ZA-GILEAD-2006-0010464

PATIENT
  Sex: Female

DRUGS (7)
  1. EMTRICITABINE/TENOFOVIR DISOPROXIL FUMARATE [Suspect]
     Indication: HIV INFECTION
     Route: 048
     Dates: start: 20061129
  2. EMTRICITABINE/TENOFOVIR DISOPROXIL FUMARATE [Suspect]
     Route: 048
     Dates: start: 20061012, end: 20061030
  3. EMTRICITABINE/TENOFOVIR DISOPROXIL FUMARATE [Suspect]
     Route: 048
     Dates: start: 20060621, end: 20060719
  4. LOPINAVIR/RITONAVIR [Concomitant]
     Indication: HIV INFECTION
     Route: 048
     Dates: start: 20061129
  5. LOPINAVIR/RITONAVIR [Concomitant]
     Route: 048
     Dates: start: 20061012, end: 20061030
  6. LOPINAVIR/RITONAVIR [Concomitant]
     Route: 048
     Dates: start: 20060621, end: 20060719
  7. COTRIM D.S. [Concomitant]
     Dates: start: 20060401

REACTIONS (4)
  - BLOOD PRESSURE DIASTOLIC DECREASED [None]
  - PNEUMOCYSTIS JIROVECI PNEUMONIA [None]
  - PULMONARY TUBERCULOSIS [None]
  - TACHYCARDIA [None]
